FAERS Safety Report 4844602-7 (Version None)
Quarter: 2005Q4

REPORT INFORMATION
  Report Type: 
  Country: None (occurrence: None)
  Receive Date: 20051129
  Receipt Date: 20051116
  Transmission Date: 20060501
  Serious: Yes (Hospitalization)
  Sender: FDA-Public Use
  Company Number: DE200511001194

PATIENT
  Age: 65 Year
  Sex: Male

DRUGS (5)
  1. GEMZAR [Suspect]
     Indication: PANCREATIC CARCINOMA
     Dosage: SEE IMAGE
     Route: 042
     Dates: start: 20051001, end: 20051001
  2. GEMZAR [Suspect]
     Indication: PANCREATIC CARCINOMA
     Dosage: SEE IMAGE
     Route: 042
     Dates: start: 20051001, end: 20051001
  3. GEMZAR [Suspect]
     Indication: PANCREATIC CARCINOMA
     Dosage: SEE IMAGE
     Route: 042
     Dates: start: 20051101, end: 20051101
  4. ACERCOMP (HYDROCHLOROTHIAZIDE, LISINOPRIL) [Concomitant]
  5. MODURETIK             (AMLORIDE HYDROCHLORIDE, HYDROCHLOROTHIAZIDE) [Concomitant]

REACTIONS (9)
  - ACCOMMODATION DISORDER [None]
  - BRAIN OEDEMA [None]
  - CEREBRAL VASOCONSTRICTION [None]
  - CEREBROVASCULAR DISORDER [None]
  - COMA [None]
  - DEPRESSED LEVEL OF CONSCIOUSNESS [None]
  - SPEECH DISORDER [None]
  - VISUAL DISTURBANCE [None]
  - VISUAL FIELD DEFECT [None]
